FAERS Safety Report 8091323-6 (Version None)
Quarter: 2012Q1

REPORT INFORMATION
  Report Type: 
  Country: None (occurrence: None)
  Receive Date: 20120129
  Receipt Date: 20110910
  Transmission Date: 20120608
  Serious: No
  Sender: FDA-Public Use
  Company Number: US-ABBOTT-11P-163-0853473-00

PATIENT
  Age: 39 Year
  Sex: Female

DRUGS (3)
  1. HUMIRA [Suspect]
     Indication: CROHN'S DISEASE
     Dates: start: 20110501
  2. UNKNOWN MEDICATION [Concomitant]
     Indication: NAUSEA
  3. PERCOCET-5 [Concomitant]
     Indication: PAIN
     Dosage: PRN

REACTIONS (2)
  - INJECTION SITE SWELLING [None]
  - INJECTION SITE HAEMATOMA [None]
